FAERS Safety Report 13602552 (Version 3)
Quarter: 2017Q3

REPORT INFORMATION
  Report Type: Spontaneous
  Country: US (occurrence: US)
  Receive Date: 20170601
  Receipt Date: 20170807
  Transmission Date: 20171127
  Serious: Yes (Other)
  Sender: FDA-Public Use
  Company Number: US-BAYER-2017-102657

PATIENT
  Age: 11 Year
  Sex: Female
  Weight: 40.82 kg

DRUGS (3)
  1. GADAVIST [Suspect]
     Active Substance: GADOBUTROL
     Indication: HEADACHE
  2. GADAVIST [Suspect]
     Active Substance: GADOBUTROL
     Indication: TIC
     Dosage: 4 ML, ONCE
     Route: 042
     Dates: start: 20170530, end: 20170530
  3. GADAVIST [Suspect]
     Active Substance: GADOBUTROL
     Indication: NUCLEAR MAGNETIC RESONANCE IMAGING BRAIN

REACTIONS (7)
  - Loss of consciousness [Recovered/Resolved]
  - Headache [Unknown]
  - Vision blurred [Unknown]
  - Hyperhidrosis [Unknown]
  - Dizziness [Recovering/Resolving]
  - Panic attack [None]
  - Seizure [Unknown]

NARRATIVE: CASE EVENT DATE: 20170530
